FAERS Safety Report 7453344-3 (Version None)
Quarter: 2011Q2

REPORT INFORMATION
  Report Type: 
  Country: None (occurrence: None)
  Receive Date: 20110502
  Receipt Date: 20110419
  Transmission Date: 20111010
  Serious: Yes (Other)
  Sender: FDA-Public Use
  Company Number: PHHY2011US19003

PATIENT
  Sex: Female
  Weight: 37 kg

DRUGS (1)
  1. EXJADE [Suspect]
     Dosage: 375 MG, QD
     Route: 048
     Dates: start: 20070413, end: 20110131

REACTIONS (2)
  - RENAL DISORDER [None]
  - LIVER FUNCTION TEST ABNORMAL [None]
